FAERS Safety Report 4677461-6 (Version None)
Quarter: 2005Q2

REPORT INFORMATION
  Report Type: 
  Country: None (occurrence: None)
  Receive Date: 20050526
  Receipt Date: 20050526
  Transmission Date: 20051028
  Serious: No
  Sender: FDA-Public Use
  Company Number: None

PATIENT
  Age: 63 Year
  Sex: Male
  Weight: 59.4212 kg

DRUGS (11)
  1. ASPIRIN [Suspect]
     Indication: PAIN
     Dosage: 325 MG PRN
  2. GOOD'S POWDER [Suspect]
     Indication: PAIN
     Dosage: 520 MG PRN
  3. CARVEDIOLOL [Concomitant]
  4. FOSINOPRIL [Concomitant]
  5. INSULIN [Concomitant]
  6. LEVOTHYROXINE SODIUM [Concomitant]
  7. LOVASTATIN [Concomitant]
  8. MIRTAZAPINE [Concomitant]
  9. NIFEDIPINE [Concomitant]
  10. OMEPRAZOLE [Concomitant]
  11. TOLTERODINE [Concomitant]

REACTIONS (5)
  - ABASIA [None]
  - ASTHENIA [None]
  - MEMORY IMPAIRMENT [None]
  - MENTAL STATUS CHANGES [None]
  - UPPER GASTROINTESTINAL HAEMORRHAGE [None]
